FAERS Safety Report 11814921 (Version 1)
Quarter: 2015Q4

REPORT INFORMATION
  Report Type: Spontaneous
  Country: US (occurrence: US)
  Receive Date: 20151209
  Receipt Date: 20151209
  Transmission Date: 20160305
  Serious: No
  Sender: FDA-Public Use
  Company Number: US-SA-2015SA142117

PATIENT
  Age: 73 Year
  Sex: Male

DRUGS (6)
  1. SOLOSTAR [Concomitant]
     Active Substance: DEVICE
     Dates: start: 201508
  2. TOUJEO [Suspect]
     Active Substance: INSULIN GLARGINE
     Indication: TYPE 2 DIABETES MELLITUS
     Dosage: DOSE:70 UNIT(S)
     Route: 065
     Dates: start: 201508
  3. SOLOSTAR [Concomitant]
     Active Substance: DEVICE
  4. HUMALOG [Concomitant]
     Active Substance: INSULIN LISPRO
  5. APIDRA [Concomitant]
     Active Substance: INSULIN GLULISINE
  6. LANTUS SOLOSTAR [Concomitant]
     Active Substance: INSULIN GLARGINE
     Dosage: DOSE: 60-70 UNITS

REACTIONS (2)
  - Hypoglycaemia [Unknown]
  - Wrong technique in product usage process [Unknown]
